FAERS Safety Report 16233435 (Version 1)
Quarter: 2019Q2

REPORT INFORMATION
  Report Type: Spontaneous
  Country: CH (occurrence: CH)
  Receive Date: 20190424
  Receipt Date: 20190424
  Transmission Date: 20190711
  Serious: Yes (Other)
  Sender: FDA-Public Use
  Company Number: CH-SA-2019SA104846

PATIENT
  Age: 88 Year
  Sex: Male

DRUGS (19)
  1. CO-EPRIL [Concomitant]
     Active Substance: ENALAPRIL MALEATE\HYDROCHLOROTHIAZIDE
     Dosage: UNK
  2. PREDNISONE. [Concomitant]
     Active Substance: PREDNISONE
     Dates: start: 20190313, end: 20190317
  3. CLARITHROMYCINE [Concomitant]
     Active Substance: CLARITHROMYCIN
     Dates: start: 20190227, end: 20190301
  4. DAFALGAN [Concomitant]
     Active Substance: ACETAMINOPHEN
     Dosage: AS NECESSARY
     Dates: start: 20190227
  5. ATORVASTATINE [ATORVASTATIN] [Concomitant]
     Active Substance: ATORVASTATIN
     Dates: start: 2011, end: 20190313
  6. AMOXICILLIN TRIHYDRATE/POTASSIUM CLAVULANATE [Suspect]
     Active Substance: AMOXICILLIN\CLAVULANATE POTASSIUM
     Dosage: 1.2 G, Q3D
     Route: 042
     Dates: start: 20190227, end: 20190228
  7. IPRAMOL [Suspect]
     Active Substance: ALBUTEROL SULFATE\IPRATROPIUM BROMIDE
     Dosage: UNK UNK, PRN
     Route: 055
     Dates: start: 20190227
  8. CLYSSIE [Concomitant]
     Dosage: AS NECESSARY
     Dates: start: 20190304
  9. TAVANIC [Concomitant]
     Active Substance: LEVOFLOXACIN
     Dosage: UNK
     Dates: start: 20190303, end: 20190306
  10. AMOXICILLIN TRIHYDRATE/POTASSIUM CLAVULANATE [Suspect]
     Active Substance: AMOXICILLIN\CLAVULANATE POTASSIUM
     Dosage: 1 G, Q3D
     Route: 048
     Dates: start: 20190228, end: 20190303
  11. CLEXANE [Suspect]
     Active Substance: ENOXAPARIN SODIUM
     Dosage: 40 MG, QD
     Route: 058
     Dates: start: 20190228, end: 20190308
  12. CETIRIZINE HYDROCHLORIDE. [Suspect]
     Active Substance: CETIRIZINE HYDROCHLORIDE
     Dosage: 10 MG, QD
     Dates: start: 20190303, end: 20190312
  13. DEXERYL [CHLORPHENAMINE MALEATE;DEXTROMETHORPHAN HYDROBROMIDE;GUAIFENE [Concomitant]
     Dosage: UNK
     Dates: start: 20190306
  14. IPRAMOL [Suspect]
     Active Substance: ALBUTEROL SULFATE\IPRATROPIUM BROMIDE
     Dosage: 1 DF, QID
     Route: 055
     Dates: start: 20190227
  15. TRAJENTA [Concomitant]
     Active Substance: LINAGLIPTIN
     Dosage: UNK
  16. ACETYLSALICYLIC ACID [Suspect]
     Active Substance: ASPIRIN
     Dosage: 100 MG
  17. LAXOBERON [Concomitant]
     Active Substance: SODIUM PICOSULFATE
     Dosage: UNK
     Dates: start: 20190301
  18. AMLODIPINE [Suspect]
     Active Substance: AMLODIPINE BESYLATE
     Dosage: 10 MG, QD
     Route: 048
  19. PRADIF T [Concomitant]
     Active Substance: TAMSULOSIN HYDROCHLORIDE
     Dosage: UNK
     Dates: start: 20190301

REACTIONS (5)
  - Urinary retention [Recovered/Resolved]
  - Eczema [Recovered/Resolved]
  - Urinary retention [Not Recovered/Not Resolved]
  - Eosinophilia [Recovered/Resolved]
  - Hyperleukocytosis [Not Recovered/Not Resolved]

NARRATIVE: CASE EVENT DATE: 20190301
